FAERS Safety Report 24465348 (Version 1)
Quarter: 2024Q4

REPORT INFORMATION
  Report Type: Report from Study
  Country: US (occurrence: US)
  Receive Date: 20241018
  Receipt Date: 20241018
  Transmission Date: 20250115
  Serious: No
  Sender: ROCHE
  Company Number: US-ROCHE-3532110

PATIENT
  Age: 46 Year
  Sex: Male
  Weight: 74.84 kg

DRUGS (4)
  1. XOLAIR [Suspect]
     Active Substance: OMALIZUMAB
     Indication: Idiopathic urticaria
     Route: 058
  2. XOLAIR [Suspect]
     Active Substance: OMALIZUMAB
  3. MUPIROCIN [Concomitant]
     Active Substance: MUPIROCIN
     Route: 061
  4. MONTELUKAST [Concomitant]
     Active Substance: MONTELUKAST
     Route: 048

REACTIONS (1)
  - Impaired healing [Unknown]
